FAERS Safety Report 5546800-6 (Version None)
Quarter: 2007Q4

REPORT INFORMATION
  Report Type: 
  Country: None (occurrence: None)
  Receive Date: 20071206
  Receipt Date: 20071130
  Transmission Date: 20080405
  Serious: Yes (Hospitalization)
  Sender: FDA-Public Use
  Company Number: E2090-00350-SPO-DE

PATIENT
  Age: 35 Year
  Sex: Female

DRUGS (3)
  1. ZONEGRAN [Suspect]
     Dosage: 200-0-200, ORAL SEVERAL WEEKS AGO
     Route: 048
     Dates: end: 20071126
  2. TOPAMAX [Concomitant]
  3. PHENYTOIN [Concomitant]

REACTIONS (3)
  - ANTICONVULSANT DRUG LEVEL ABOVE THERAPEUTIC [None]
  - COMA [None]
  - EPILEPSY [None]
